FAERS Safety Report 14784214 (Version 2)
Quarter: 2018Q2

REPORT INFORMATION
  Report Type: Report from Study
  Country: US (occurrence: US)
  Receive Date: 20180420
  Receipt Date: 20180620
  Transmission Date: 20180711
  Serious: Yes (Hospitalization, Other)
  Sender: FDA-Public Use
  Company Number: US-ASTELLAS-2018US005862

PATIENT
  Age: 67 Year
  Sex: Female

DRUGS (4)
  1. TACROLIMUS. [Suspect]
     Active Substance: TACROLIMUS
     Indication: COMPLICATIONS OF TRANSPLANTED LUNG
  2. TACROLIMUS. [Suspect]
     Active Substance: TACROLIMUS
     Indication: LUNG TRANSPLANT
     Route: 048
     Dates: start: 20080213
  3. TACROLIMUS. [Suspect]
     Active Substance: TACROLIMUS
     Indication: COMPLICATIONS OF TRANSPLANTED LUNG
  4. TACROLIMUS. [Suspect]
     Active Substance: TACROLIMUS
     Indication: LUNG TRANSPLANT
     Dosage: 0.5 MG, TWICE DAILY
     Route: 048
     Dates: start: 20080213

REACTIONS (7)
  - Viral infection [Unknown]
  - Fall [Recovered/Resolved]
  - Off label use [Unknown]
  - Renal disorder [Unknown]
  - Ligament sprain [Recovered/Resolved]
  - Myalgia [Recovered/Resolved]
  - Neurological infection [Unknown]

NARRATIVE: CASE EVENT DATE: 20180206
